FAERS Safety Report 5807202-8 (Version None)
Quarter: 2008Q3

REPORT INFORMATION
  Report Type: 
  Country: None (occurrence: None)
  Receive Date: 20080711
  Receipt Date: 20080710
  Transmission Date: 20090109
  Serious: Yes (Other)
  Sender: FDA-Public Use
  Company Number: B0525188A

PATIENT
  Age: 65 Year
  Sex: Male

DRUGS (1)
  1. SERETIDE [Suspect]
     Indication: CHRONIC OBSTRUCTIVE PULMONARY DISEASE
     Route: 055

REACTIONS (5)
  - ANGINA PECTORIS [None]
  - DRUG INEFFECTIVE [None]
  - DYSPNOEA [None]
  - NON-CARDIAC CHEST PAIN [None]
  - PHARMACEUTICAL PRODUCT COMPLAINT [None]
